FAERS Safety Report 6246492-7 (Version None)
Quarter: 2009Q2

REPORT INFORMATION
  Report Type: 
  Country: None (occurrence: None)
  Receive Date: 20090626
  Receipt Date: 20090325
  Transmission Date: 20091009
  Serious: No
  Sender: FDA-Public Use
  Company Number: US-BAYER-200916658NA

PATIENT
  Age: 43 Year
  Sex: Female

DRUGS (1)
  1. ANGELIQ [Suspect]
     Indication: MENOPAUSAL SYMPTOMS
     Dosage: CONTINUOUS
     Route: 048
     Dates: start: 20090101

REACTIONS (2)
  - BACK PAIN [None]
  - NECK PAIN [None]
